FAERS Safety Report 10490408 (Version 1)
Quarter: 2014Q4

REPORT INFORMATION
  Report Type: Report from Study
  Country: None (occurrence: DE)
  Receive Date: 20141002
  Receipt Date: 20141002
  Transmission Date: 20150528
  Serious: Yes (Death, Other)
  Sender: FDA-Public Use
  Company Number: DE-CELGENE-062-21880-14093782

PATIENT
  Age: 74 Year
  Sex: Female

DRUGS (2)
  1. REVLIMID [Suspect]
     Active Substance: LENALIDOMIDE
     Indication: MYELODYSPLASTIC SYNDROME
     Route: 048
     Dates: start: 20101123, end: 20121226
  2. VIDAZA [Suspect]
     Active Substance: AZACITIDINE
     Indication: REFRACTORY ANAEMIA WITH AN EXCESS OF BLASTS
     Route: 065
     Dates: start: 20130902, end: 20131006

REACTIONS (2)
  - Refractory anaemia with an excess of blasts [Not Recovered/Not Resolved]
  - Acute kidney injury [Fatal]

NARRATIVE: CASE EVENT DATE: 20130702
